FAERS Safety Report 5040084-3 (Version None)
Quarter: 2006Q2

REPORT INFORMATION
  Report Type: 
  Country: None (occurrence: None)
  Receive Date: 20060601
  Receipt Date: 20060105
  Transmission Date: 20061013
  Serious: No
  Sender: FDA-Public Use
  Company Number: 2006PV006598

PATIENT
  Age: 60 Year
  Sex: Female
  Weight: 63.5036 kg

DRUGS (5)
  1. BYETTA [Suspect]
     Indication: DIABETES MELLITUS NON-INSULIN-DEPENDENT
     Dosage: 5 MCG; BID; SC
     Route: 058
     Dates: start: 20050913, end: 20051224
  2. BYETTA [Suspect]
     Indication: DIABETES MELLITUS NON-INSULIN-DEPENDENT
     Dosage: 5 MCG; BID; SC
     Route: 058
     Dates: start: 20050105
  3. GLIPIZIDE [Concomitant]
  4. AFRIN [Concomitant]
  5. MOTRIN [Concomitant]

REACTIONS (8)
  - BODY TEMPERATURE INCREASED [None]
  - COUGH [None]
  - DIZZINESS [None]
  - HALLUCINATION [None]
  - INFLUENZA [None]
  - NAUSEA [None]
  - RASH [None]
  - UPPER RESPIRATORY TRACT CONGESTION [None]
